FAERS Safety Report 12927279 (Version 1)
Quarter: 2016Q4

REPORT INFORMATION
  Report Type: Spontaneous
  Country: US (occurrence: US)
  Receive Date: 20161109
  Receipt Date: 20161109
  Transmission Date: 20170207
  Serious: Yes (Hospitalization)
  Sender: FDA-Public Use
  Company Number: None

PATIENT
  Age: 68 Year
  Sex: Male
  Weight: 130.1 kg

DRUGS (4)
  1. TRAMETINIB [Suspect]
     Active Substance: TRAMETINIB
     Indication: BRAF GENE MUTATION
     Dosage: MG PO
     Route: 048
     Dates: start: 20161020, end: 20161107
  2. DABRAFENIB [Suspect]
     Active Substance: DABRAFENIB
     Indication: METASTATIC MALIGNANT MELANOMA
     Dosage: MG PO
     Route: 048
     Dates: start: 20161020, end: 20161107
  3. TRAMETINIB [Suspect]
     Active Substance: TRAMETINIB
     Indication: METASTATIC MALIGNANT MELANOMA
     Dosage: MG PO
     Route: 048
     Dates: start: 20161020, end: 20161107
  4. DABRAFENIB [Suspect]
     Active Substance: DABRAFENIB
     Indication: BRAF GENE MUTATION
     Dosage: MG PO
     Route: 048
     Dates: start: 20161020, end: 20161107

REACTIONS (9)
  - Blood lactate dehydrogenase increased [None]
  - Hepatic enzyme increased [None]
  - Pyrexia [None]
  - Lipase increased [None]
  - Blood creatine phosphokinase increased [None]
  - Thrombocytopenia [None]
  - Acute kidney injury [None]
  - Asthenia [None]
  - Anaemia [None]

NARRATIVE: CASE EVENT DATE: 20161107
